FAERS Safety Report 7256804-3 (Version None)
Quarter: 2011Q1

REPORT INFORMATION
  Report Type: 
  Country: None (occurrence: None)
  Receive Date: 20110129
  Receipt Date: 20100618
  Transmission Date: 20110831
  Serious: No
  Sender: FDA-Public Use
  Company Number: US-ABBOTT-10P-163-0652299-00

PATIENT
  Age: 29 Year
  Sex: Female

DRUGS (12)
  1. ABILIFY [Concomitant]
     Indication: PRODUCT USED FOR UNKNOWN INDICATION
     Route: 048
  2. WELLBUTRIN [Concomitant]
     Indication: PRODUCT USED FOR UNKNOWN INDICATION
     Route: 048
  3. TRAZODONE [Concomitant]
     Indication: PRODUCT USED FOR UNKNOWN INDICATION
     Route: 048
  4. BETRAL [Concomitant]
     Indication: PRODUCT USED FOR UNKNOWN INDICATION
     Route: 048
  5. EFFEXOR XR [Concomitant]
     Indication: PRODUCT USED FOR UNKNOWN INDICATION
     Dosage: 1 TABLET EACH DOSAGE DAILY
     Route: 048
  6. NAPROSYN [Concomitant]
     Indication: PAIN
     Route: 048
  7. HUMIRA [Suspect]
     Indication: PSORIASIS
     Route: 058
     Dates: start: 20100603
  8. EFFEXOR XR [Concomitant]
     Dosage: 1 TABLET EACH DOSAGE DAILY
     Route: 048
  9. EFFEXOR XR [Concomitant]
     Dosage: 1 TABLET EACH DOSAGE DAILY
  10. LAMICTAL [Concomitant]
     Indication: PRODUCT USED FOR UNKNOWN INDICATION
     Route: 048
  11. NORTRAL BIRTH CONTROL [Concomitant]
     Indication: PRODUCT USED FOR UNKNOWN INDICATION
     Dosage: DAILY
  12. BUSPAR [Concomitant]
     Indication: PRODUCT USED FOR UNKNOWN INDICATION

REACTIONS (2)
  - INJECTION SITE HAEMATOMA [None]
  - OPEN WOUND [None]
